FAERS Safety Report 11082224 (Version 8)
Quarter: 2016Q1

REPORT INFORMATION
  Report Type: Spontaneous
  Country: US (occurrence: US)
  Receive Date: 20150501
  Receipt Date: 20160310
  Transmission Date: 20160525
  Serious: Yes (Other)
  Sender: FDA-Public Use
  Company Number: US-ACTELION-A-NJ2015-113168

PATIENT
  Age: 73 Year
  Sex: Female

DRUGS (3)
  1. ADCIRCA [Suspect]
     Active Substance: TADALAFIL
     Indication: PRODUCT USED FOR UNKNOWN INDICATION
     Dosage: UNK
     Route: 065
     Dates: end: 20150323
  2. OPSUMIT [Suspect]
     Active Substance: MACITENTAN
     Indication: PULMONARY ARTERIAL HYPERTENSION
     Dosage: 10 MG, QD
     Route: 048
     Dates: start: 20140306
  3. RIOCIGUAT [Suspect]
     Active Substance: RIOCIGUAT
     Indication: PRODUCT USED FOR UNKNOWN INDICATION
     Dosage: UNK
     Route: 065

REACTIONS (27)
  - Gastric disorder [Unknown]
  - Back pain [Unknown]
  - Hypoacusis [Unknown]
  - Dyspnoea [Unknown]
  - Hallucination [Unknown]
  - Carpal tunnel syndrome [Unknown]
  - Nausea [Unknown]
  - Nephrolithiasis [Unknown]
  - Asthenia [Unknown]
  - Lung neoplasm malignant [Unknown]
  - Speech disorder [Unknown]
  - Anxiety [Recovering/Resolving]
  - Neuropathy peripheral [Unknown]
  - Dyspepsia [Recovering/Resolving]
  - Pain [Unknown]
  - Lung infection [Unknown]
  - Constipation [Not Recovered/Not Resolved]
  - Headache [Unknown]
  - Dizziness [Unknown]
  - Blood pressure decreased [Unknown]
  - Migraine [Unknown]
  - Oedema peripheral [Unknown]
  - Trigeminal neuralgia [Unknown]
  - Diarrhoea [Unknown]
  - Sinusitis [Unknown]
  - Swelling [Unknown]
  - Chest pain [Unknown]
